FAERS Safety Report 22065697 (Version 1)
Quarter: 2023Q1

REPORT INFORMATION
  Report Type: Report from Study
  Country: FR (occurrence: FR)
  Receive Date: 20230306
  Receipt Date: 20230306
  Transmission Date: 20230417
  Serious: Yes (Hospitalization)
  Sender: FDA-Public Use
  Company Number: FR-SA-SAC20230301000536

PATIENT
  Age: 62 Year
  Sex: Female
  Weight: 58 kg

DRUGS (8)
  1. ISATUXIMAB [Suspect]
     Active Substance: ISATUXIMAB
     Indication: Plasma cell myeloma refractory
     Dosage: 600 MG
     Dates: start: 20220920, end: 20220920
  2. ISATUXIMAB [Suspect]
     Active Substance: ISATUXIMAB
     Dosage: 600 MG
     Dates: start: 20230213, end: 20230213
  3. CARFILZOMIB [Suspect]
     Active Substance: CARFILZOMIB
     Indication: Plasma cell myeloma refractory
     Dosage: 33 MG
     Dates: start: 20220920, end: 20220920
  4. CARFILZOMIB [Suspect]
     Active Substance: CARFILZOMIB
     Dosage: 92.2 MG
     Dates: start: 20230220, end: 20230220
  5. POMALIDOMIDE [Suspect]
     Active Substance: POMALIDOMIDE
     Indication: Plasma cell myeloma refractory
     Dosage: 3 MG
     Dates: start: 20220920, end: 20220920
  6. POMALIDOMIDE [Suspect]
     Active Substance: POMALIDOMIDE
     Dosage: 4 MG
     Dates: start: 20230221, end: 20230221
  7. DEXAMETHASONE [Concomitant]
     Active Substance: DEXAMETHASONE
     Indication: Plasma cell myeloma refractory
     Dosage: 40 MG
     Dates: start: 20220920, end: 20220920
  8. DEXAMETHASONE [Concomitant]
     Active Substance: DEXAMETHASONE
     Dosage: 40 MG
     Dates: start: 20230220, end: 20230220

REACTIONS (1)
  - Bronchitis chronic [Recovered/Resolved with Sequelae]

NARRATIVE: CASE EVENT DATE: 20230220
